FAERS Safety Report 4303399-X (Version None)
Quarter: 2004Q1

REPORT INFORMATION
  Report Type: 
  Country: None (occurrence: None)
  Receive Date: 20040223
  Receipt Date: 20040212
  Transmission Date: 20041129
  Serious: Yes (Other)
  Sender: FDA-Public Use
  Company Number: HQWYE955912FEB04

PATIENT
  Age: 80 Year
  Sex: Female

DRUGS (1)
  1. PROTIUM (PANTOPRAZOLE, TABLET, DELAYED RELEASE) [Suspect]
     Route: 048
     Dates: start: 20020617, end: 20020716

REACTIONS (1)
  - HEPATITIS CHOLESTATIC [None]
